FAERS Safety Report 25318321 (Version 1)
Quarter: 2025Q2

REPORT INFORMATION
  Report Type: Spontaneous
  Country: US (occurrence: US)
  Receive Date: 20250515
  Receipt Date: 20250515
  Transmission Date: 20250717
  Serious: Yes (Hospitalization)
  Sender: MYLAN
  Company Number: US-MYLANLABS-2025M1040564

PATIENT
  Age: 1 Week
  Sex: Female

DRUGS (6)
  1. ESMOLOL [Suspect]
     Active Substance: ESMOLOL HYDROCHLORIDE
     Indication: Atrial tachycardia
  2. IVABRADINE [Suspect]
     Active Substance: IVABRADINE
     Indication: Atrial tachycardia
  3. SOTALOL [Suspect]
     Active Substance: SOTALOL
     Indication: Atrial tachycardia
  4. AMIODARONE [Concomitant]
     Active Substance: AMIODARONE
     Indication: Atrial tachycardia
  5. PROPRANOLOL [Concomitant]
     Active Substance: PROPRANOLOL HYDROCHLORIDE
     Indication: Atrial tachycardia
  6. DIGOXIN [Concomitant]
     Active Substance: DIGOXIN
     Indication: Atrial tachycardia

REACTIONS (1)
  - Drug ineffective [Unknown]
